FAERS Safety Report 8183437 (Version 4)
Quarter: 2013Q3

REPORT INFORMATION
  Report Type: Spontaneous
  Country: US (occurrence: None)
  Receive Date: 20111005
  Receipt Date: 20130917
  Transmission Date: 20140515
  Serious: Yes (Hospitalization, Other)
  Sender: FDA-Public Use
  Company Number: CIP11000537

PATIENT
  Age: 72 Year
  Sex: Female

DRUGS (34)
  1. ACTONEL [Suspect]
     Indication: OSTEOPOROSIS
     Dosage: 5 MG DAILY, ORAL
     Route: 048
     Dates: start: 200009, end: 20010219
  2. FOSAMAX [Suspect]
     Indication: OSTEOPOROSIS
     Dosage: 10 MG DAILY, ORAL
     Route: 048
     Dates: start: 19960304, end: 200009
  3. FOSAMAX [Suspect]
     Indication: OSTEOPOROSIS
     Dosage: 70 MG WEEKLY, ORAL
     Route: 048
     Dates: start: 20010219, end: 20020423
  4. ACTONEL [Suspect]
     Indication: OSTEOPOROSIS
     Dosage: 35 MG WEEKLY, ORAL
     Route: 048
     Dates: start: 20020930, end: 200512
  5. ACTONEL [Suspect]
     Indication: OSTEOPOROSIS
     Dosage: 10 MG TWICE DAILY, ORAL
     Route: 048
  6. MIACALCIN [Suspect]
  7. NIFEDIPINE [Concomitant]
  8. CELEBREX [Concomitant]
  9. SINGULAIR [Concomitant]
  10. ATROVENT (IPRATROPIUM BROMIDE) [Concomitant]
  11. ALBUTEROL (SALBUTAMOL) [Concomitant]
  12. POTASSIUM CHLORIDE (POTASSIUM CHLORIDE) [Concomitant]
  13. BUSPIRONE HYDROCHLORIDE [Concomitant]
  14. THEOPHYLLINE [Concomitant]
  15. INDAPAMIDE [Concomitant]
  16. METHOCARBAMOL [Concomitant]
  17. QUININE SULFATE [Concomitant]
  18. ADVAIR HFA [Concomitant]
  19. PREDNISONE [Concomitant]
  20. CHEMOTHERAPEUTICS NOS [Concomitant]
  21. LEVAQUIN [Concomitant]
  22. NITROGLYCERIN (GLYCERYL TRINITRATE) [Concomitant]
  23. PREMPHASE (ESTROGENS CONJUGATED, MEDROXYPROGESTERONE ACETATE) [Concomitant]
  24. MYCELEX [Concomitant]
  25. LOPRESSOR HCT (HYDROCHLOROTHIAZIDE, METOPROLOL TARTRATE) [Concomitant]
  26. NEURONTIN [Concomitant]
  27. AVELOX [Concomitant]
  28. ALLEGRA [Concomitant]
  29. FLONASE [Concomitant]
  30. CALCIUM CARBONATE [Concomitant]
  31. TYLENOL WITH CODEIN#4 (CODEINE PHOSPHATE, PARACETAMOL) [Concomitant]
  32. ZANTAC [Concomitant]
  33. ACYCLOVIR [Concomitant]
  34. CALCITONIN (CALCITONIN) [Concomitant]

REACTIONS (27)
  - Stress fracture [None]
  - Femur fracture [None]
  - Arthralgia [None]
  - Groin pain [None]
  - Pain in extremity [None]
  - Mass [None]
  - Bone disorder [None]
  - Device breakage [None]
  - Incorrect dose administered [None]
  - Abdominal discomfort [None]
  - Procedural pain [None]
  - Osteomyelitis chronic [None]
  - Osteonecrosis [None]
  - Wound infection [None]
  - Cellulitis [None]
  - Bacteraemia [None]
  - Wound haematoma [None]
  - Pelvic pain [None]
  - Joint dislocation [None]
  - Treatment noncompliance [None]
  - Device dislocation [None]
  - Bone graft [None]
  - Medical device complication [None]
  - Economic problem [None]
  - Device failure [None]
  - Fracture nonunion [None]
  - Hip deformity [None]
